FAERS Safety Report 19840890 (Version 1)
Quarter: 2021Q3

REPORT INFORMATION
  Report Type: Spontaneous
  Country: US (occurrence: US)
  Receive Date: 20210916
  Receipt Date: 20210916
  Transmission Date: 20211014
  Serious: Yes (Other)
  Sender: FDA-Public Use
  Company Number: US-LUPIN PHARMACEUTICALS INC.-2021-17354

PATIENT
  Age: 52 Year
  Sex: Female

DRUGS (2)
  1. LACTATED RINGERS SOLUTION [Concomitant]
     Active Substance: CALCIUM CHLORIDE\POTASSIUM CHLORIDE\SODIUM CHLORIDE\SODIUM LACTATE
     Indication: LEPTOSPIROSIS
     Dosage: UNK (INFUSION)
     Route: 065
  2. CEFTRIAXONE. [Suspect]
     Active Substance: CEFTRIAXONE
     Indication: LEPTOSPIROSIS
     Dosage: UNK
     Route: 065

REACTIONS (7)
  - Transaminases increased [Recovering/Resolving]
  - Condition aggravated [Recovering/Resolving]
  - Chromaturia [Recovering/Resolving]
  - Urine output decreased [Recovering/Resolving]
  - Hyperbilirubinaemia [Recovering/Resolving]
  - Jarisch-Herxheimer reaction [Recovering/Resolving]
  - Renal failure [Recovering/Resolving]
